FAERS Safety Report 8647044 (Version 2)
Quarter: 2019Q2

REPORT INFORMATION
  Report Type: Spontaneous
  Country: FR (occurrence: FR)
  Receive Date: 20120703
  Receipt Date: 20190530
  Transmission Date: 20190711
  Serious: Yes (Hospitalization, Other)
  Sender: FDA-Public Use
  Company Number: FR-SANOFI-AVENTIS-2012SA045402

PATIENT
  Age: 65 Year
  Sex: Male

DRUGS (3)
  1. PLAQUENIL [Suspect]
     Active Substance: HYDROXYCHLOROQUINE SULFATE
     Indication: SYSTEMIC LUPUS ERYTHEMATOSUS
     Dosage: 1 DF,QD
     Route: 048
     Dates: start: 2006
  2. PLAQUENIL [Suspect]
     Active Substance: HYDROXYCHLOROQUINE SULFATE
     Dosage: 1 DF,QD
     Route: 048
     Dates: start: 20120320, end: 20120604
  3. HEXAQUINE [Suspect]
     Active Substance: NIAOULI OIL\QUININE BENZOATE\THIAMINE HYDROCHLORIDE
     Indication: MUSCLE SPASMS
     Dosage: 1 DF,TID
     Route: 048
     Dates: start: 20120515, end: 20120604

REACTIONS (2)
  - Atrioventricular block complete [Recovered/Resolved]
  - Bradycardia [Recovered/Resolved]

NARRATIVE: CASE EVENT DATE: 20120604
